FAERS Safety Report 7441125-6 (Version None)
Quarter: 2011Q2

REPORT INFORMATION
  Report Type: 
  Country: None (occurrence: None)
  Receive Date: 20110427
  Receipt Date: 20110414
  Transmission Date: 20111010
  Serious: Yes (Hospitalization)
  Sender: FDA-Public Use
  Company Number: BE-MYLANLABS-2011S1008129

PATIENT
  Age: 18 Year
  Sex: Female
  Weight: 50 kg

DRUGS (1)
  1. DILTIAZEM [Suspect]
     Indication: INTENTIONAL OVERDOSE
     Dosage: SUSTAINED-RELEASE
     Route: 048

REACTIONS (8)
  - HYPOTENSION [None]
  - RESPIRATORY FAILURE [None]
  - BLOOD LACTIC ACID INCREASED [None]
  - INTENTIONAL OVERDOSE [None]
  - HYPERGLYCAEMIA [None]
  - TACHYCARDIA [None]
  - OLIGURIA [None]
  - BLOOD CREATININE INCREASED [None]
